FAERS Safety Report 12803992 (Version 2)
Quarter: 2016Q4

REPORT INFORMATION
  Report Type: Spontaneous
  Country: GB (occurrence: GB)
  Receive Date: 20161003
  Receipt Date: 20161012
  Transmission Date: 20170207
  Serious: Yes (Other)
  Sender: FDA-Public Use
  Company Number: GB-MYLANLABS-2016M1041568

PATIENT

DRUGS (2)
  1. COCODAMOL [Concomitant]
     Active Substance: ACETAMINOPHEN\CODEINE PHOSPHATE
     Indication: HEADACHE
     Dosage: UNK
  2. VENLAFAXINE [Suspect]
     Active Substance: VENLAFAXINE HYDROCHLORIDE
     Dosage: 37.5 MG, UNK (CURRENT )
     Route: 065

REACTIONS (32)
  - Delirium [Unknown]
  - General physical health deterioration [Unknown]
  - Feeling jittery [Unknown]
  - Irritability [Unknown]
  - Cognitive disorder [Unknown]
  - Lip dry [Unknown]
  - Anxiety [Unknown]
  - Dissociation [Unknown]
  - Incoherent [Unknown]
  - Dry mouth [Unknown]
  - Mental disorder [Unknown]
  - Feeling guilty [Unknown]
  - Depression [Unknown]
  - Obsessive-compulsive disorder [Unknown]
  - Bruxism [Unknown]
  - Dizziness [Unknown]
  - Somnolence [Unknown]
  - Headache [Unknown]
  - Feeling hot [Unknown]
  - Hyperhidrosis [Unknown]
  - Paranoia [Unknown]
  - Depressed mood [Unknown]
  - Asthenia [Unknown]
  - Fatigue [Unknown]
  - Feeling abnormal [Unknown]
  - Affective disorder [Unknown]
  - Psychiatric symptom [Unknown]
  - Suicidal ideation [Unknown]
  - Syncope [Unknown]
  - Lethargy [Unknown]
  - Decreased interest [Unknown]
  - Humidity intolerance [Unknown]
